FAERS Safety Report 7608734-2 (Version None)
Quarter: 2011Q3

REPORT INFORMATION
  Report Type: 
  Country: None (occurrence: None)
  Receive Date: 20110714
  Receipt Date: 20110705
  Transmission Date: 20111222
  Serious: Yes (Hospitalization)
  Sender: FDA-Public Use
  Company Number: FR-TEVA-289704ISR

PATIENT
  Age: 75 Year
  Sex: Male

DRUGS (4)
  1. PIRIBEDIL [Concomitant]
     Indication: PARKINSON'S DISEASE
     Route: 048
  2. AZILECT [Suspect]
     Indication: PARKINSON'S DISEASE
     Route: 048
     Dates: start: 20100916, end: 20110701
  3. STALEVO 100 [Concomitant]
     Indication: PARKINSON'S DISEASE
     Route: 048
  4. SINEMET [Concomitant]
     Indication: PARKINSON'S DISEASE
     Route: 048

REACTIONS (1)
  - SUBDURAL HAEMATOMA [None]
